FAERS Safety Report 6766669-1 (Version None)
Quarter: 2010Q2

REPORT INFORMATION
  Report Type: 
  Country: None (occurrence: None)
  Receive Date: 20100611
  Receipt Date: 20100430
  Transmission Date: 20101027
  Serious: Yes (Death, Other)
  Sender: FDA-Public Use
  Company Number: US-BAXTER-2009BH011589

PATIENT
  Sex: Female

DRUGS (51)
  1. HEPARIN SODIUM [Suspect]
     Indication: HAEMODIALYSIS
     Route: 065
     Dates: start: 20050502, end: 20071001
  2. HEPARIN SODIUM [Suspect]
     Indication: ATRIAL FIBRILLATION
     Route: 065
     Dates: start: 20050502, end: 20071001
  3. HEPARIN SODIUM [Suspect]
     Route: 065
     Dates: start: 20051215, end: 20051223
  4. HEPARIN SODIUM [Suspect]
     Route: 065
     Dates: start: 20051215, end: 20051223
  5. HEPARIN SODIUM [Suspect]
     Route: 058
     Dates: start: 20060326, end: 20060612
  6. HEPARIN SODIUM [Suspect]
     Route: 058
     Dates: start: 20060326, end: 20060612
  7. HEPARIN SODIUM [Suspect]
     Route: 058
     Dates: start: 20060811, end: 20060818
  8. HEPARIN SODIUM [Suspect]
     Route: 058
     Dates: start: 20060811, end: 20060818
  9. HEPARIN SODIUM [Suspect]
     Route: 042
     Dates: start: 20061124, end: 20061124
  10. HEPARIN SODIUM [Suspect]
     Route: 042
     Dates: start: 20061124, end: 20061124
  11. HEPARIN SODIUM [Suspect]
     Route: 065
     Dates: start: 20051215, end: 20051223
  12. HEPARIN SODIUM [Suspect]
     Route: 065
     Dates: start: 20051215, end: 20051223
  13. HEPARIN SODIUM [Suspect]
     Route: 065
     Dates: start: 20060601, end: 20060628
  14. HEPARIN SODIUM [Suspect]
     Route: 065
     Dates: start: 20060601, end: 20060628
  15. HEPARIN SODIUM [Suspect]
     Route: 058
     Dates: start: 20061024, end: 20061025
  16. HEPARIN SODIUM [Suspect]
     Route: 058
     Dates: start: 20061024, end: 20061025
  17. HEPARIN SODIUM [Suspect]
     Route: 042
     Dates: start: 20061124, end: 20061124
  18. HEPARIN SODIUM [Suspect]
     Route: 042
     Dates: start: 20061124, end: 20061124
  19. HEPARIN SODIUM [Suspect]
     Route: 058
     Dates: start: 20070221, end: 20070228
  20. HEPARIN SODIUM [Suspect]
     Route: 058
     Dates: start: 20070221, end: 20070228
  21. HEPARIN SODIUM [Suspect]
     Route: 042
     Dates: start: 20061201, end: 20061201
  22. HEPARIN SODIUM [Suspect]
     Route: 042
     Dates: start: 20061201, end: 20061201
  23. HEPARIN SODIUM [Suspect]
     Route: 042
     Dates: start: 20070627
  24. HEPARIN SODIUM [Suspect]
     Route: 042
     Dates: start: 20070627
  25. HEPARIN SODIUM [Suspect]
     Route: 042
     Dates: start: 20061201, end: 20061201
  26. HEPARIN SODIUM [Suspect]
     Route: 042
     Dates: start: 20061201, end: 20061201
  27. HEPARIN SODIUM [Suspect]
     Route: 058
     Dates: start: 20070221, end: 20070228
  28. HEPARIN SODIUM [Suspect]
     Route: 058
     Dates: start: 20070221, end: 20070228
  29. HEPARIN SODIUM 5,000 UNITS IN DEXTROSE 5% [Suspect]
     Indication: DRUG USE FOR UNKNOWN INDICATION
     Route: 042
     Dates: start: 20070915, end: 20070917
  30. PREGABALIN [Suspect]
     Indication: DRUG USE FOR UNKNOWN INDICATION
     Dates: start: 20061001, end: 20061001
  31. CLONIDINE [Concomitant]
     Indication: DRUG USE FOR UNKNOWN INDICATION
     Route: 065
  32. PHOSLO [Concomitant]
     Indication: DRUG USE FOR UNKNOWN INDICATION
     Route: 065
  33. AMLODIPINE [Concomitant]
     Indication: DRUG USE FOR UNKNOWN INDICATION
     Route: 065
  34. PRAVACHOL [Concomitant]
     Indication: DRUG USE FOR UNKNOWN INDICATION
     Route: 065
  35. COREG [Concomitant]
     Indication: DRUG USE FOR UNKNOWN INDICATION
     Route: 065
  36. HYDRALAZINE HCL [Concomitant]
     Indication: DRUG USE FOR UNKNOWN INDICATION
     Route: 065
  37. ASPIRIN [Concomitant]
     Indication: DRUG USE FOR UNKNOWN INDICATION
     Route: 065
  38. FLUOXETINE [Concomitant]
     Indication: DRUG USE FOR UNKNOWN INDICATION
     Route: 065
  39. CALCITRIOL [Concomitant]
     Indication: DRUG USE FOR UNKNOWN INDICATION
     Route: 065
  40. TORSEMIDE [Concomitant]
     Indication: DRUG USE FOR UNKNOWN INDICATION
     Route: 065
  41. DOXAZOSIN MESYLATE [Concomitant]
     Indication: DRUG USE FOR UNKNOWN INDICATION
     Route: 065
  42. ISOSORBIDE [Concomitant]
     Indication: DRUG USE FOR UNKNOWN INDICATION
     Route: 065
  43. ALLEGRA [Concomitant]
     Indication: DRUG USE FOR UNKNOWN INDICATION
     Route: 065
  44. EPOGEN [Concomitant]
     Indication: DRUG USE FOR UNKNOWN INDICATION
     Route: 065
  45. INSULIN [Concomitant]
     Indication: DRUG USE FOR UNKNOWN INDICATION
     Route: 065
  46. IRON [Concomitant]
     Indication: DRUG USE FOR UNKNOWN INDICATION
     Route: 065
  47. NEPHROCAPS [Concomitant]
     Indication: DRUG USE FOR UNKNOWN INDICATION
     Route: 065
  48. LEXAPRO [Concomitant]
     Indication: DRUG USE FOR UNKNOWN INDICATION
     Route: 065
  49. PEPCID [Concomitant]
     Indication: DRUG USE FOR UNKNOWN INDICATION
     Route: 065
  50. REGLAN [Concomitant]
     Indication: DRUG USE FOR UNKNOWN INDICATION
     Route: 065
  51. LIDODERM [Concomitant]
     Indication: DRUG USE FOR UNKNOWN INDICATION
     Route: 065

REACTIONS (43)
  - ABDOMINAL WALL INFECTION [None]
  - ARRHYTHMIA [None]
  - ARTERIOSCLEROSIS CORONARY ARTERY [None]
  - ASTHENIA [None]
  - ATRIAL FIBRILLATION [None]
  - BLINDNESS UNILATERAL [None]
  - BLOOD PRESSURE FLUCTUATION [None]
  - BRADYCARDIA [None]
  - BRONCHITIS [None]
  - CARDIAC ARREST [None]
  - CEREBROVASCULAR DISORDER [None]
  - CHEST PAIN [None]
  - CLOSTRIDIAL INFECTION [None]
  - DEHYDRATION [None]
  - DEPRESSED LEVEL OF CONSCIOUSNESS [None]
  - DIVERTICULUM [None]
  - DIVERTICULUM INTESTINAL [None]
  - DIZZINESS [None]
  - DRUG TOXICITY [None]
  - FLUID OVERLOAD [None]
  - GASTROENTERITIS [None]
  - HAEMODIALYSIS [None]
  - HAEMOPTYSIS [None]
  - HYPOTENSION [None]
  - INCISION SITE INFECTION [None]
  - LARGE INTESTINE PERFORATION [None]
  - METABOLIC ENCEPHALOPATHY [None]
  - MOUTH ULCERATION [None]
  - MULTI-ORGAN FAILURE [None]
  - NAUSEA [None]
  - PERIPHERAL VASCULAR DISORDER [None]
  - PERITONITIS [None]
  - PHARYNGITIS [None]
  - PNEUMONIA [None]
  - POLYNEUROPATHY [None]
  - PRURITUS [None]
  - RENAL FAILURE CHRONIC [None]
  - RESPIRATORY FAILURE [None]
  - SUPRAVENTRICULAR TACHYCARDIA [None]
  - UROSEPSIS [None]
  - VASCULITIS [None]
  - VISION BLURRED [None]
  - VOMITING [None]
